FAERS Safety Report 11044322 (Version 15)
Quarter: 2020Q1

REPORT INFORMATION
  Report Type: Report from Study
  Country: PL (occurrence: PL)
  Receive Date: 20150417
  Receipt Date: 20200117
  Transmission Date: 20200409
  Serious: Yes (Death)
  Sender: FDA-Public Use
  Company Number: PL-PFIZER INC-2015129020

PATIENT
  Age: 59 Year
  Sex: Male
  Weight: 78 kg

DRUGS (10)
  1. PARACETAMOL [Concomitant]
     Active Substance: ACETAMINOPHEN
     Indication: RHEUMATOID ARTHRITIS
     Dosage: 500, AS NEEDED
     Route: 048
     Dates: start: 20111026, end: 2015
  2. ENCORTON [PREDNISONE ACETATE] [Concomitant]
     Active Substance: PREDNISONE ACETATE
     Indication: RHEUMATOID ARTHRITIS
     Dosage: UNK, DAILY
     Route: 048
     Dates: start: 20140517, end: 201504
  3. ATROVENT [Concomitant]
     Active Substance: IPRATROPIUM BROMIDE
     Indication: CHRONIC OBSTRUCTIVE PULMONARY DISEASE
     Dosage: UNK, 4X/DAY
     Route: 055
     Dates: start: 201102, end: 201504
  4. SPIRIVA [Concomitant]
     Active Substance: TIOTROPIUM BROMIDE MONOHYDRATE
     Indication: CHRONIC OBSTRUCTIVE PULMONARY DISEASE
     Dosage: UNK, DAILY
     Route: 055
     Dates: start: 201102, end: 201504
  5. METEX [METHOTREXATE SODIUM] [Concomitant]
     Active Substance: METHOTREXATE SODIUM
     Indication: RHEUMATOID ARTHRITIS
     Dosage: 20 UNK, WEEKLY
     Route: 058
     Dates: start: 20140517, end: 201504
  6. ACIDUM FOLICUM [Concomitant]
     Active Substance: FOLIC ACID
     Indication: RHEUMATOID ARTHRITIS
     Dosage: UNK, WEEKLY
     Route: 048
     Dates: start: 20091124, end: 201504
  7. OLFEN SR [Concomitant]
     Indication: RHEUMATOID ARTHRITIS
     Dosage: 75, 2X/DAY
     Route: 048
     Dates: start: 20120103, end: 201504
  8. OSTENIL [ALENDRONATE SODIUM] [Concomitant]
     Indication: OSTEOPOROSIS
     Dosage: 70, WEEKLY
     Route: 048
     Dates: start: 20111011, end: 201504
  9. TOFACITINIB CITRATE [Suspect]
     Active Substance: TOFACITINIB CITRATE
     Indication: RHEUMATOID ARTHRITIS
     Dosage: 10 MG, 2X/DAY: REGIMENT 2X2
     Route: 048
     Dates: start: 20141114
  10. OXODIL [Concomitant]
     Active Substance: FORMOTEROL FUMARATE
     Indication: CHRONIC OBSTRUCTIVE PULMONARY DISEASE
     Dosage: UNK, 2X/DAY
     Route: 055
     Dates: start: 201102, end: 201504

REACTIONS (1)
  - Sudden death [Fatal]

NARRATIVE: CASE EVENT DATE: 20150409
